FAERS Safety Report 21909375 (Version 3)
Quarter: 2023Q4

REPORT INFORMATION
  Report Type: Spontaneous
  Country: US (occurrence: US)
  Receive Date: 20230125
  Receipt Date: 20231019
  Transmission Date: 20240110
  Serious: Yes (Other)
  Sender: FDA-Public Use
  Company Number: US-INCYTE CORPORATION-2023IN000643

PATIENT

DRUGS (4)
  1. JAKAFI [Suspect]
     Active Substance: RUXOLITINIB
     Indication: Myelofibrosis
     Dosage: 15 MILLIGRAM, BID
     Route: 048
     Dates: start: 20220416
  2. JAKAFI [Suspect]
     Active Substance: RUXOLITINIB
     Dosage: 15 MILLIGRAM, BID
     Route: 048
     Dates: start: 20220730
  3. JAKAFI [Suspect]
     Active Substance: RUXOLITINIB
     Dosage: 15 MILLIGRAM, BID
     Route: 048
     Dates: start: 20210901
  4. MORPHINE [Concomitant]
     Active Substance: MORPHINE
     Indication: Product used for unknown indication
     Dosage: 15 MILLIGRAM, BID
     Route: 065

REACTIONS (11)
  - Pneumonia [Unknown]
  - Haemoglobin decreased [Unknown]
  - Myelofibrosis [Unknown]
  - Blood iron increased [Unknown]
  - Splenomegaly [Unknown]
  - Serum ferritin increased [Unknown]
  - Pain [Unknown]
  - Mobility decreased [Unknown]
  - Decreased activity [Unknown]
  - Diarrhoea [Unknown]
  - Disease progression [Unknown]
